FAERS Safety Report 24260711 (Version 1)
Quarter: 2024Q3

REPORT INFORMATION
  Report Type: Spontaneous
  Country: US (occurrence: US)
  Receive Date: 20240828
  Receipt Date: 20240828
  Transmission Date: 20241016
  Serious: Yes (Other)
  Sender: MALLINCKRODT
  Company Number: US-MALLINCKRODT-MNK202405284

PATIENT
  Sex: Female

DRUGS (3)
  1. CORTICOTROPIN [Suspect]
     Active Substance: CORTICOTROPIN
     Indication: Iridocyclitis
     Route: 058
     Dates: start: 202208
  2. RUXIENCE [Concomitant]
     Active Substance: RITUXIMAB-PVVR
     Dosage: UNKNOWN (10ML/VL)
  3. GAMMAGARD LIQUID [Concomitant]
     Active Substance: HUMAN IMMUNOGLOBULIN G
     Dosage: UNKNOWN

REACTIONS (2)
  - Iridocyclitis [Not Recovered/Not Resolved]
  - Condition aggravated [Not Recovered/Not Resolved]
